FAERS Safety Report 25540836 (Version 1)
Quarter: 2025Q3

REPORT INFORMATION
  Report Type: Spontaneous
  Country: CN (occurrence: CN)
  Receive Date: 20250710
  Receipt Date: 20250710
  Transmission Date: 20251021
  Serious: Yes (Hospitalization, Other)
  Sender: NOVARTIS
  Company Number: CN-002147023-NVSC2025CN107748

PATIENT
  Age: 70 Year
  Sex: Male
  Weight: 57.3 kg

DRUGS (9)
  1. CYCLOSPORINE [Suspect]
     Active Substance: CYCLOSPORINE
     Indication: Aplastic anaemia
     Dosage: 125 MG, BID
     Route: 048
     Dates: start: 20250529, end: 20250616
  2. ELTROMBOPAG [Suspect]
     Active Substance: ELTROMBOPAG
     Indication: Aplastic anaemia
     Dosage: 50 MG, QD (TABLET)
     Route: 048
     Dates: start: 20250529, end: 20250616
  3. ELTROMBOPAG [Suspect]
     Active Substance: ELTROMBOPAG
     Indication: Platelet production decreased
  4. LEUCOGEN [Concomitant]
     Active Substance: LEUCOGEN
     Indication: Full blood count decreased
     Dosage: 20 MG, TID
     Route: 048
     Dates: start: 20250519, end: 20250616
  5. LEUCOGEN [Concomitant]
     Active Substance: LEUCOGEN
     Indication: Myelosuppression
  6. DANAZOL [Concomitant]
     Active Substance: DANAZOL
     Indication: Aplastic anaemia
     Dosage: 0.2 G, TID
     Route: 048
     Dates: start: 20250529, end: 20250618
  7. DANAZOL [Concomitant]
     Active Substance: DANAZOL
     Indication: Myelosuppression
  8. BATILOL [Concomitant]
     Active Substance: BATILOL
     Indication: Full blood count decreased
     Dosage: 50 MG, TID
     Route: 048
     Dates: start: 20250519, end: 20250616
  9. BATILOL [Concomitant]
     Active Substance: BATILOL
     Indication: Myelosuppression

REACTIONS (5)
  - Liver injury [Unknown]
  - Decreased appetite [Not Recovered/Not Resolved]
  - Asthenia [Not Recovered/Not Resolved]
  - Dizziness [Not Recovered/Not Resolved]
  - Off label use [Unknown]

NARRATIVE: CASE EVENT DATE: 20250616
